FAERS Safety Report 13069457 (Version 3)
Quarter: 2017Q1

REPORT INFORMATION
  Report Type: Report from Study
  Country: US (occurrence: US)
  Receive Date: 20161228
  Receipt Date: 20170227
  Transmission Date: 20170428
  Serious: Yes (Death, Hospitalization, Other)
  Sender: FDA-Public Use
  Company Number: US-BAYER-2016-238483

PATIENT
  Age: 81 Year
  Sex: Male

DRUGS (4)
  1. XOFIGO [Suspect]
     Active Substance: RADIUM RA-223 DICHLORIDE
     Indication: PROSTATE CANCER STAGE IV
     Dosage: 136.60 UCI, ONCE EVERY 28 DAYS
     Route: 042
     Dates: start: 20161027
  2. XOFIGO [Suspect]
     Active Substance: RADIUM RA-223 DICHLORIDE
     Indication: METASTASES TO BONE
     Dosage: UNK
     Dates: start: 20160929
  3. ASPIRIN. [Concomitant]
     Active Substance: ASPIRIN
     Dosage: 650 MG, QD
     Route: 048
  4. ABIRATERONE [Concomitant]
     Active Substance: ABIRATERONE
     Dosage: 4 TABLETS EVERY MORNING
     Route: 048

REACTIONS (6)
  - Confusional state [None]
  - Asthenia [None]
  - Prostate cancer metastatic [Fatal]
  - Pain [None]
  - Laboratory test abnormal [None]
  - Fall [None]

NARRATIVE: CASE EVENT DATE: 20161211
